FAERS Safety Report 17077275 (Version 1)
Quarter: 2019Q4

REPORT INFORMATION
  Report Type: Spontaneous
  Country: US (occurrence: US)
  Receive Date: 20191126
  Receipt Date: 20191126
  Transmission Date: 20200122
  Serious: No
  Sender: FDA-Public Use
  Company Number: US-PFIZER INC-2019511287

PATIENT
  Age: 61 Year
  Sex: Female
  Weight: 81.65 kg

DRUGS (2)
  1. LYRICA [Suspect]
     Active Substance: PREGABALIN
     Indication: NEURALGIA
     Dosage: 50 MG, 2X/DAY,(50MG TO TAKE IN THE EVENING AND 50 MG IN THE MORNING)
     Dates: start: 2019, end: 2019
  2. LYRICA [Suspect]
     Active Substance: PREGABALIN
     Dosage: 100 MG, 1X/DAY
     Route: 048
     Dates: start: 201911

REACTIONS (4)
  - Visual acuity reduced [Unknown]
  - Swelling of eyelid [Unknown]
  - Somnolence [Unknown]
  - Eye swelling [Unknown]

NARRATIVE: CASE EVENT DATE: 2019
